FAERS Safety Report 8065814-8 (Version None)
Quarter: 2012Q1

REPORT INFORMATION
  Report Type: 
  Country: None (occurrence: None)
  Receive Date: 20120124
  Receipt Date: 20120112
  Transmission Date: 20120608
  Serious: Yes (Other)
  Sender: FDA-Public Use
  Company Number: PHHY2012US002699

PATIENT
  Age: 85 Year
  Sex: Female

DRUGS (1)
  1. BUFFERIN [Suspect]
     Indication: RHEUMATOID ARTHRITIS
     Dosage: 6 DF, UNK
     Route: 048

REACTIONS (3)
  - CAROTID ARTERY DISEASE [None]
  - INCORRECT DRUG ADMINISTRATION DURATION [None]
  - WRONG TECHNIQUE IN DRUG USAGE PROCESS [None]
